FAERS Safety Report 9266867 (Version 1)
Quarter: 2013Q2

REPORT INFORMATION
  Report Type: Spontaneous
  Country: AT (occurrence: AT)
  Receive Date: 20130502
  Receipt Date: 20130502
  Transmission Date: 20140414
  Serious: Yes (Other)
  Sender: FDA-Public Use
  Company Number: AT-UCBSA-084292

PATIENT
  Sex: 0

DRUGS (2)
  1. VIMPAT [Suspect]
     Indication: EPILEPSY
  2. LAMOTRIGIN [Concomitant]
     Indication: EPILEPSY

REACTIONS (1)
  - Muscle spasticity [Unknown]
